FAERS Safety Report 14716345 (Version 2)
Quarter: 2018Q2

REPORT INFORMATION
  Report Type: Report from Study
  Country: US (occurrence: US)
  Receive Date: 20180404
  Receipt Date: 20180426
  Transmission Date: 20180711
  Serious: Yes (Death)
  Sender: FDA-Public Use
  Company Number: PHEH2018US011394

PATIENT
  Age: 14 Year
  Sex: Female
  Weight: 34.2 kg

DRUGS (1)
  1. OMNITROPE [Suspect]
     Active Substance: SOMATROPIN
     Indication: BODY HEIGHT BELOW NORMAL
     Dosage: 1.6 MG, QD
     Route: 058
     Dates: start: 20171122

REACTIONS (1)
  - Drowning [Fatal]

NARRATIVE: CASE EVENT DATE: 20180317
